FAERS Safety Report 7132751-2 (Version None)
Quarter: 2010Q4

REPORT INFORMATION
  Report Type: 
  Country: None (occurrence: None)
  Receive Date: 20101202
  Receipt Date: 20101124
  Transmission Date: 20110411
  Serious: No
  Sender: FDA-Public Use
  Company Number: US-PFIZER INC-2010157285

PATIENT
  Sex: Female
  Weight: 62.6 kg

DRUGS (12)
  1. PRISTIQ [Suspect]
     Indication: DEPRESSION
     Dosage: 50 MG, UNK
     Route: 048
     Dates: start: 20100101
  2. SYSTANE [Concomitant]
     Indication: DRY EYE
     Dosage: UNK
     Route: 047
     Dates: start: 20090101
  3. LYRICA [Concomitant]
     Dosage: 50 MG, UNK
  4. LOTREL [Concomitant]
     Dosage: UNK
     Route: 048
  5. WELCHOL [Concomitant]
     Indication: BLOOD CHOLESTEROL INCREASED
     Dosage: UNK
     Route: 048
  6. CARVEDILOL [Concomitant]
     Indication: HYPERTENSION
     Dosage: 12.5 MG, UNK
     Route: 048
  7. ALPRAZOLAM [Concomitant]
     Dosage: 2 MG, 1X/DAY
     Route: 048
  8. WARFARIN SODIUM [Concomitant]
     Indication: ANTICOAGULANT THERAPY
     Dosage: UNK
  9. CALCIUM CITRATE [Concomitant]
     Indication: MEDICAL DIET
     Dosage: UNK
  10. VITAMIN B3 (NICOTINIC ACID AMIDE) [Concomitant]
     Indication: MEDICAL DIET
     Dosage: UNK
  11. FISH OIL [Concomitant]
     Indication: MEDICAL DIET
     Dosage: UNK
  12. AMBIEN [Concomitant]
     Dosage: UNK

REACTIONS (1)
  - ABNORMAL SENSATION IN EYE [None]
